FAERS Safety Report 7177758-4 (Version None)
Quarter: 2010Q4

REPORT INFORMATION
  Report Type: 
  Country: None (occurrence: None)
  Receive Date: 20101220
  Receipt Date: 20101215
  Transmission Date: 20110411
  Serious: Yes (Hospitalization, Other)
  Sender: FDA-Public Use
  Company Number: PHHY2010JP85227

PATIENT
  Age: 80 Year
  Sex: Female

DRUGS (2)
  1. CEFTRIAXONE SODIUM [Suspect]
     Indication: CELLULITIS
     Dosage: 4 G, QD
  2. CEFTRIAXONE SODIUM [Suspect]
     Dosage: 2 G, QD

REACTIONS (11)
  - ABDOMINAL PAIN [None]
  - ABNORMAL BEHAVIOUR [None]
  - ALTERED STATE OF CONSCIOUSNESS [None]
  - CHOLECYSTITIS [None]
  - CHOLELITHIASIS [None]
  - CHOREOATHETOSIS [None]
  - CYSTOSTOMY [None]
  - DISORIENTATION [None]
  - DYSKINESIA [None]
  - OVERDOSE [None]
  - PYREXIA [None]
